FAERS Safety Report 12066006 (Version 1)
Quarter: 2016Q1

REPORT INFORMATION
  Report Type: Spontaneous
  Country: US (occurrence: None)
  Receive Date: 20160210
  Receipt Date: 20160210
  Transmission Date: 20160526
  Serious: Yes (Disabling)
  Sender: FDA-Public Use
  Company Number: None

PATIENT
  Age: 91 Year
  Sex: Female
  Weight: 48.08 kg

DRUGS (11)
  1. HYDROCODONE [Suspect]
     Active Substance: HYDROCODONE
  2. ALOPURINOL [Suspect]
     Active Substance: ALLOPURINOL
  3. LOSARTAN. [Suspect]
     Active Substance: LOSARTAN
  4. CARVEDILOL. [Suspect]
     Active Substance: CARVEDILOL
  5. LOVASTATIN. [Suspect]
     Active Substance: LOVASTATIN
  6. CIPROFLOXACIN HCL 250MG TAB DR. RE 55111-0126-01 [Suspect]
     Active Substance: CIPROFLOXACIN HYDROCHLORIDE
     Indication: CYSTITIS
     Dosage: 2 PILLS 1 PILL TWICE DAILY BY MOUTH
     Route: 048
     Dates: start: 20150930, end: 20151001
  7. MORPHINE [Concomitant]
     Active Substance: MORPHINE
  8. AMIODARONE [Suspect]
     Active Substance: AMIODARONE
  9. FUROSEMIDE. [Suspect]
     Active Substance: FUROSEMIDE
  10. ASPIRIN. [Concomitant]
     Active Substance: ASPIRIN
  11. LEVOTHYROXINE. [Concomitant]
     Active Substance: LEVOTHYROXINE

REACTIONS (6)
  - Arthralgia [None]
  - Swelling face [None]
  - Pain in extremity [None]
  - Peripheral swelling [None]
  - Joint swelling [None]
  - Abdominal discomfort [None]

NARRATIVE: CASE EVENT DATE: 20151010
